FAERS Safety Report 6153764-3 (Version None)
Quarter: 2009Q2

REPORT INFORMATION
  Report Type: 
  Country: None (occurrence: None)
  Receive Date: 20090410
  Receipt Date: 20090330
  Transmission Date: 20091009
  Serious: Yes (Death, Hospitalization, Other)
  Sender: FDA-Public Use
  Company Number: 2009AP001379

PATIENT
  Age: 39 Year
  Sex: Male

DRUGS (10)
  1. CARBAMAZEPINE [Suspect]
  2. TRAZODONE HYDROCHLORIDE [Suspect]
  3. FLUOXETINE HYDROCHLORIDE [Suspect]
  4. SEROQUEL [Suspect]
  5. BENZTROPINE MESYLATE [Suspect]
  6. ZYPREXA [Suspect]
     Dosage: 10 MG
  7. PROPRANOLOL HYDROCHLORIDE [Suspect]
  8. BACITRACIN [Suspect]
  9. MILK OF MAGNESIA [Suspect]
  10. DOCUSATE SODIUM [Suspect]

REACTIONS (6)
  - ASPIRATION [None]
  - ASTHMA [None]
  - GASTROOESOPHAGEAL REFLUX DISEASE [None]
  - SUDDEN DEATH [None]
  - UNRESPONSIVE TO STIMULI [None]
  - VOMITING [None]
